FAERS Safety Report 6720211-X (Version None)
Quarter: 2010Q2

REPORT INFORMATION
  Report Type: 
  Country: None (occurrence: None)
  Receive Date: 20100511
  Receipt Date: 20100501
  Transmission Date: 20101027
  Serious: Yes (Other)
  Sender: FDA-Public Use
  Company Number: US-JNJFOC-20100501575

PATIENT
  Age: 12 Month

DRUGS (4)
  1. MOTRIN [Suspect]
  2. MOTRIN [Suspect]
     Indication: DRUG USE FOR UNKNOWN INDICATION
  3. CHILDREN'S TYLENOL LIQUID DYE-FREE CHERRY [Suspect]
  4. CHILDREN'S TYLENOL LIQUID DYE-FREE CHERRY [Suspect]
     Indication: DRUG USE FOR UNKNOWN INDICATION

REACTIONS (2)
  - PRODUCT QUALITY ISSUE [None]
  - URINE OUTPUT DECREASED [None]
